FAERS Safety Report 24697342 (Version 1)
Quarter: 2024Q4

REPORT INFORMATION
  Report Type: Report from Study
  Country: US (occurrence: US)
  Receive Date: 20241204
  Receipt Date: 20241204
  Transmission Date: 20250114
  Serious: Yes (Hospitalization)
  Sender: JOHNSON AND JOHNSON
  Company Number: US-JNJFOC-20241136720

PATIENT
  Sex: Female
  Weight: 50.802 kg

DRUGS (2)
  1. EPOPROSTENOL SODIUM [Suspect]
     Active Substance: EPOPROSTENOL SODIUM
     Indication: Pulmonary arterial hypertension
     Route: 042
  2. OPSUMIT [Concomitant]
     Active Substance: MACITENTAN

REACTIONS (5)
  - Drug delivery system malfunction [Unknown]
  - Device occlusion [Unknown]
  - Product administration interrupted [Unknown]
  - Paraesthesia [Unknown]
  - Underdose [Unknown]
